FAERS Safety Report 17126482 (Version 2)
Quarter: 2020Q2

REPORT INFORMATION
  Report Type: Spontaneous
  Country: US (occurrence: US)
  Receive Date: 20191209
  Receipt Date: 20200402
  Transmission Date: 20200713
  Serious: No
  Sender: FDA-Public Use
  Company Number: US-UCBSA-2017011653

PATIENT
  Age: 50 Year
  Sex: Female
  Weight: 84.35 kg

DRUGS (10)
  1. NEUPRO [Suspect]
     Active Substance: ROTIGOTINE
     Indication: DYSTONIA
     Dosage: 2 MG
     Dates: start: 201612, end: 20170315
  2. FUROSEMIDE. [Concomitant]
     Active Substance: FUROSEMIDE
     Indication: PRODUCT USED FOR UNKNOWN INDICATION
     Dosage: UNK, AS NEEDED (PRN) FOR FLUID
  3. HYDROCODONE [Concomitant]
     Active Substance: HYDROCODONE
     Indication: COMPLEX REGIONAL PAIN SYNDROME
     Dosage: 10/325
  4. DRAMAMINE [Concomitant]
     Active Substance: DIMENHYDRINATE
     Indication: VERTIGO
     Dosage: UNK, AS NEEDED (PRN)
  5. GABAPENTIN. [Concomitant]
     Active Substance: GABAPENTIN
     Indication: PRODUCT USED FOR UNKNOWN INDICATION
     Dosage: 600 MG, 4X/DAY (QID)
  6. ZOFRAN [Concomitant]
     Active Substance: ONDANSETRON HYDROCHLORIDE
     Indication: PRODUCT USED FOR UNKNOWN INDICATION
     Dosage: 8 MG, AS NEEDED (PRN), N/V
  7. VALIUM [Concomitant]
     Active Substance: DIAZEPAM
     Indication: DYSTONIA
     Dosage: 10 MG, 3X/DAY (TID)
  8. NEUPRO [Suspect]
     Active Substance: ROTIGOTINE
     Dosage: 4 MG
     Dates: start: 20170316
  9. BACLOFEN. [Concomitant]
     Active Substance: BACLOFEN
     Indication: DYSTONIA
     Dosage: UPTO 180 MG DAILY IN DIVIDED DOSES
  10. KCL [Concomitant]
     Active Substance: POTASSIUM CHLORIDE
     Indication: MINERAL SUPPLEMENTATION
     Dosage: IF TAKES FUROSEMIDE

REACTIONS (6)
  - Vomiting [Recovering/Resolving]
  - Nausea [Recovering/Resolving]
  - Visual impairment [Recovering/Resolving]
  - Off label use [Unknown]
  - Vertigo [Recovering/Resolving]
  - Hallucination [Recovering/Resolving]

NARRATIVE: CASE EVENT DATE: 201612
